FAERS Safety Report 6383750-X (Version None)
Quarter: 2009Q4

REPORT INFORMATION
  Report Type: 
  Country: None (occurrence: None)
  Receive Date: 20091001
  Receipt Date: 20090918
  Transmission Date: 20100525
  Serious: Yes (Congenital Anomaly)
  Sender: FDA-Public Use
  Company Number: FR-BAYER-200933522GPV

PATIENT

DRUGS (2)
  1. YAZ [Suspect]
     Route: 064
  2. UNKNOWN CONCOMITANT TREATMENT (NOS) [Concomitant]
     Route: 064

REACTIONS (2)
  - FOETAL MALFORMATION [None]
  - MATERNAL DRUGS AFFECTING FOETUS [None]
